FAERS Safety Report 7863113-8 (Version None)
Quarter: 2011Q4

REPORT INFORMATION
  Report Type: 
  Country: None (occurrence: None)
  Receive Date: 20111027
  Receipt Date: 20101129
  Transmission Date: 20120403
  Serious: No
  Sender: FDA-Public Use
  Company Number: US-AMGEN-KDL359616

PATIENT
  Age: 74 Year
  Sex: Female

DRUGS (3)
  1. ENBREL [Suspect]
     Indication: PALINDROMIC RHEUMATISM
     Dosage: 25 MG, QWK
     Route: 058
     Dates: start: 20020503
  2. METHOTREXATE [Concomitant]
     Dosage: 7.5 MG, QWK
     Route: 048
  3. ENBREL [Suspect]
     Indication: PRODUCT USED FOR UNKNOWN INDICATION
     Dosage: 25 MG, QWK
     Route: 058
     Dates: start: 20060501

REACTIONS (11)
  - LIMB DISCOMFORT [None]
  - PARAESTHESIA [None]
  - ARTHRALGIA [None]
  - BACK PAIN [None]
  - INCREASED TENDENCY TO BRUISE [None]
  - EPHELIDES [None]
  - INJECTION SITE HAEMATOMA [None]
  - INJECTION SITE ERYTHEMA [None]
  - RASH PRURITIC [None]
  - OEDEMA PERIPHERAL [None]
  - RASH ERYTHEMATOUS [None]
